FAERS Safety Report 7224590-9 (Version None)
Quarter: 2011Q1

REPORT INFORMATION
  Report Type: 
  Country: None (occurrence: None)
  Receive Date: 20110113
  Receipt Date: 20110106
  Transmission Date: 20110831
  Serious: Yes (Other)
  Sender: FDA-Public Use
  Company Number: US-PFIZER INC-2011004104

PATIENT
  Sex: Female
  Weight: 63.492 kg

DRUGS (9)
  1. KLONOPIN [Concomitant]
     Indication: ANXIETY
     Dosage: 1 MG, 1X/DAY
     Route: 048
  2. OXCARBAZEPINE [Concomitant]
     Indication: CONVULSION
     Dosage: 300 MG, UNK
     Route: 048
  3. VENLAFAXINE HCL [Suspect]
     Indication: ANXIETY
  4. EFFEXOR [Suspect]
     Indication: BIPOLAR DISORDER
  5. VENLAFAXINE HCL [Suspect]
     Indication: DEPRESSION
     Dosage: UNKNOWN DOSE/UNKNOWN FREQUENCY
  6. VENLAFAXINE HCL [Suspect]
     Indication: BIPOLAR DISORDER
  7. ABILIFY [Concomitant]
     Indication: BIPOLAR DISORDER
     Dosage: 2.5 MG, 1X/DAY
     Route: 048
  8. EFFEXOR [Suspect]
     Indication: DEPRESSION
     Dosage: 150 MG, 1X/DAY
     Route: 048
     Dates: start: 20070101
  9. EFFEXOR [Suspect]
     Indication: ANXIETY

REACTIONS (5)
  - SUICIDAL IDEATION [None]
  - DEPRESSION [None]
  - BACK PAIN [None]
  - IRRITABILITY [None]
  - DRUG INEFFECTIVE [None]
